FAERS Safety Report 12084207 (Version 1)
Quarter: 2016Q1

REPORT INFORMATION
  Report Type: Spontaneous
  Country: US (occurrence: None)
  Receive Date: 20160216
  Receipt Date: 20160216
  Transmission Date: 20160526
  Serious: Yes (Life-Threatening, Other)
  Sender: FDA-Public Use
  Company Number: None

PATIENT
  Age: 37 Year
  Sex: Male
  Weight: 83.92 kg

DRUGS (4)
  1. ESCITALOPRAM  20 MG [Suspect]
     Active Substance: ESCITALOPRAM OXALATE
     Indication: PANIC DISORDER
     Route: 048
  2. LEXAPRO [Concomitant]
     Active Substance: ESCITALOPRAM OXALATE
  3. ESCITALOPRAM  20 MG [Suspect]
     Active Substance: ESCITALOPRAM OXALATE
     Indication: DEPRESSION
     Route: 048
  4. ALPRAZOLAM EXTENDED RELEASE [Concomitant]
     Active Substance: ALPRAZOLAM

REACTIONS (9)
  - Headache [None]
  - Nausea [None]
  - Panic attack [None]
  - Anger [None]
  - Vomiting [None]
  - Depression [None]
  - Muscle twitching [None]
  - Product substitution issue [None]
  - Drug withdrawal syndrome [None]

NARRATIVE: CASE EVENT DATE: 20160211
